FAERS Safety Report 18726576 (Version 1)
Quarter: 2021Q1

REPORT INFORMATION
  Report Type: Spontaneous
  Country: CO (occurrence: CO)
  Receive Date: 20210111
  Receipt Date: 20210111
  Transmission Date: 20210419
  Serious: Yes (Hospitalization)
  Sender: FDA-Public Use
  Company Number: CO-GUERBET-CO-20210001

PATIENT
  Age: 17 Year
  Sex: Female

DRUGS (2)
  1. OPTIRAY 300 [Suspect]
     Active Substance: IOVERSOL
     Indication: COMPUTERISED TOMOGRAM ABDOMEN
     Route: 042
     Dates: start: 20201226, end: 20201226
  2. OPTIRAY 300 [Suspect]
     Active Substance: IOVERSOL
     Indication: COMPUTERISED TOMOGRAM HEAD

REACTIONS (4)
  - Seizure [Unknown]
  - Disorientation [Unknown]
  - Nervous system disorder [Unknown]
  - Delusion [Unknown]

NARRATIVE: CASE EVENT DATE: 20201226
